FAERS Safety Report 5019700-8 (Version None)
Quarter: 2006Q2

REPORT INFORMATION
  Report Type: 
  Country: None (occurrence: None)
  Receive Date: 20060601
  Receipt Date: 20060524
  Transmission Date: 20061013
  Serious: Yes (Other)
  Sender: FDA-Public Use
  Company Number: 2006068087

PATIENT
  Sex: Female

DRUGS (7)
  1. ALDACTONE [Suspect]
     Indication: ILL-DEFINED DISORDER
     Dosage: 25 MG (25 MG, DAILY INTERVAL:  EVERY DAY)
  2. ALPRAZOLAM [Suspect]
     Indication: ILL-DEFINED DISORDER
     Dosage: 0.25 MG (0.125 MG, BID INTERVAL: EVERY DAY)
  3. PRESERVISION SOFTGELS WITH LUTEIN (MINERALS NOS, VITAMINS NOS, XANTHOP [Suspect]
     Indication: ILL-DEFINED DISORDER
     Dates: start: 20060501
  4. SYNTHROID [Suspect]
     Indication: ILL-DEFINED DISORDER
     Dosage: 0.075 MG (0.075 MG, DAILY INTERVAL:  EVERY DAY)
  5. TOPROL-XL [Suspect]
     Indication: ILL-DEFINED DISORDER
     Dosage: 50 MG (50 MG, DAILY INTERVAL: EVERY DAY)
  6. KLOR-CON [Suspect]
     Indication: ILL-DEFINED DISORDER
     Dosage: 20 MEQ (10 MEQ, BID INTERVAL:  EVERY DAY)
  7. LASIX [Concomitant]

REACTIONS (3)
  - DRUG INTERACTION [None]
  - FATIGUE [None]
  - MALAISE [None]
